FAERS Safety Report 9447378 (Version 2)
Quarter: 2015Q4

REPORT INFORMATION
  Report Type: Report from Study
  Country: US (occurrence: US)
  Receive Date: 20130808
  Receipt Date: 20151020
  Transmission Date: 20160305
  Serious: Yes (Hospitalization, Other)
  Sender: FDA-Public Use
  Company Number: US-ROCHE-1256968

PATIENT
  Age: 72 Year
  Sex: Female

DRUGS (4)
  1. KADCYLA [Suspect]
     Active Substance: ADO-TRASTUZUMAB EMTANSINE
     Indication: BREAST CANCER
     Route: 065
     Dates: start: 20130712
  2. HERCEPTIN [Suspect]
     Active Substance: TRASTUZUMAB
     Indication: HER-2 POSITIVE BREAST CANCER
     Route: 065
  3. LASIX [Concomitant]
     Active Substance: FUROSEMIDE
     Route: 048
  4. AVAPRO [Concomitant]
     Active Substance: IRBESARTAN
     Route: 048

REACTIONS (12)
  - Platelet count decreased [Unknown]
  - Respiratory disorder [Unknown]
  - Lung disorder [Not Recovered/Not Resolved]
  - Pneumonia [Unknown]
  - Pleural effusion [Unknown]
  - Aspartate aminotransferase increased [Unknown]
  - Cardiac failure congestive [Unknown]
  - Pulmonary oedema [Unknown]
  - Disease progression [Not Recovered/Not Resolved]
  - Cellulitis [Unknown]
  - Disease recurrence [Unknown]
  - Skin disorder [Unknown]

NARRATIVE: CASE EVENT DATE: 20130719
